FAERS Safety Report 5467669-4 (Version None)
Quarter: 2007Q3

REPORT INFORMATION
  Report Type: 
  Country: None (occurrence: None)
  Receive Date: 20070921
  Receipt Date: 20070910
  Transmission Date: 20080115
  Serious: Yes (Hospitalization)
  Sender: FDA-Public Use
  Company Number: 2007AL003829

PATIENT
  Age: 87 Year
  Sex: Female

DRUGS (6)
  1. NAPROXEN [Suspect]
     Dosage: 500 MG; BID; PO
     Route: 048
     Dates: start: 20070701, end: 20070808
  2. TRAMADOL HCL [Concomitant]
  3. BENDROFLUMETHIAZIDE [Concomitant]
  4. IRBESARTAN [Concomitant]
  5. PARACETAMOL [Concomitant]
  6. ATORVASTATIN CALCIUM [Concomitant]

REACTIONS (2)
  - DUODENAL PERFORATION [None]
  - PERITONITIS [None]
